FAERS Safety Report 5516278-7 (Version None)
Quarter: 2007Q4

REPORT INFORMATION
  Report Type: 
  Country: None (occurrence: None)
  Receive Date: 20071114
  Receipt Date: 20070119
  Transmission Date: 20080405
  Serious: No
  Sender: FDA-Public Use
  Company Number: A0636050A

PATIENT
  Age: 47 Year
  Sex: Female

DRUGS (1)
  1. COMMIT [Suspect]
     Dates: start: 20070116, end: 20070117

REACTIONS (1)
  - DYSGEUSIA [None]
